FAERS Safety Report 9648536 (Version 1)
Quarter: 2013Q4

REPORT INFORMATION
  Report Type: Spontaneous
  Country: US (occurrence: None)
  Receive Date: 20131024
  Receipt Date: 20131024
  Transmission Date: 20140711
  Serious: Yes (Other)
  Sender: FDA-Public Use
  Company Number: ENTC2013-0391

PATIENT
  Sex: Female

DRUGS (1)
  1. STALEVO [Suspect]

REACTIONS (1)
  - Dialysis [None]
